FAERS Safety Report 4972145-9 (Version None)
Quarter: 2006Q2

REPORT INFORMATION
  Report Type: 
  Country: None (occurrence: None)
  Receive Date: 20060412
  Receipt Date: 20060412
  Transmission Date: 20061013
  Serious: Yes (Disabling)
  Sender: FDA-Public Use
  Company Number: None

PATIENT
  Sex: Female
  Weight: 87.0906 kg

DRUGS (5)
  1. LEVAQUIN [Suspect]
     Indication: ARTHRALGIA
     Dosage: 500 MG 1 PO BID
     Route: 048
     Dates: start: 20060322, end: 20060326
  2. LEVAQUIN [Suspect]
     Indication: MYALGIA
     Dosage: 500 MG 1 PO BID
     Route: 048
     Dates: start: 20060322, end: 20060326
  3. ZOLOFT [Concomitant]
  4. TOPROL-XL [Concomitant]
  5. LIPITOR [Concomitant]

REACTIONS (1)
  - MYALGIA [None]
